FAERS Safety Report 17338539 (Version 1)
Quarter: 2020Q1

REPORT INFORMATION
  Report Type: Spontaneous
  Country: NL (occurrence: NL)
  Receive Date: 20200129
  Receipt Date: 20200129
  Transmission Date: 20200409
  Serious: Yes (Other)
  Sender: FDA-Public Use
  Company Number: NVSC2020NL022024

PATIENT

DRUGS (9)
  1. CEFTRIAXONE. [Concomitant]
     Active Substance: CEFTRIAXONE
     Indication: INFECTION
  2. FOSFOMYCIN [Suspect]
     Active Substance: FOSFOMYCIN
     Indication: INFECTION
     Dosage: 3 G EVERY 48 HRS
     Route: 048
  3. CIPROFLOXACIN. [Suspect]
     Active Substance: CIPROFLOXACIN
     Indication: INFECTION
     Dosage: UNK
     Route: 065
  4. CIPROFLOXACIN. [Suspect]
     Active Substance: CIPROFLOXACIN
     Indication: ESCHERICHIA BACTERAEMIA
  5. CEFTRIAXONE. [Concomitant]
     Active Substance: CEFTRIAXONE
     Indication: SEPTIC SHOCK
     Dosage: UNK
     Route: 042
  6. AMOXICILLIN SODIUM,POTASSIUM CLAVULANATE [Suspect]
     Active Substance: AMOXICILLIN\CLAVULANATE POTASSIUM
     Indication: ESCHERICHIA BACTERAEMIA
  7. CEFTRIAXONE. [Concomitant]
     Active Substance: CEFTRIAXONE
     Indication: ESCHERICHIA BACTERAEMIA
  8. FOSFOMYCIN [Suspect]
     Active Substance: FOSFOMYCIN
     Indication: ESCHERICHIA BACTERAEMIA
  9. AMOXICILLIN SODIUM,POTASSIUM CLAVULANATE [Suspect]
     Active Substance: AMOXICILLIN\CLAVULANATE POTASSIUM
     Indication: INFECTION
     Dosage: UNK
     Route: 065

REACTIONS (2)
  - Intervertebral discitis [Unknown]
  - Drug resistance [Unknown]
